FAERS Safety Report 7357507-7 (Version None)
Quarter: 2011Q1

REPORT INFORMATION
  Report Type: 
  Country: None (occurrence: None)
  Receive Date: 20110307
  Receipt Date: 20100922
  Transmission Date: 20110831
  Serious: No
  Sender: FDA-Public Use
  Company Number: AEUSA2010000363

PATIENT
  Age: 59 Year
  Sex: Female
  Weight: 70.8 kg

DRUGS (2)
  1. PROLASTIN [Suspect]
     Indication: ALPHA-1 ANTI-TRYPSIN DEFICIENCY
     Dosage: QM;IV
     Route: 042
     Dates: start: 20091001, end: 20100301
  2. PROLASTIN-C [Suspect]
     Indication: ALPHA-1 ANTI-TRYPSIN DEFICIENCY
     Dosage: 120 MG/KG;QOW;IV
     Route: 042
     Dates: start: 20100401

REACTIONS (1)
  - POSTMENOPAUSAL HAEMORRHAGE [None]
